FAERS Safety Report 13434087 (Version 4)
Quarter: 2017Q2

REPORT INFORMATION
  Report Type: Spontaneous
  Country: US (occurrence: US)
  Receive Date: 20170413
  Receipt Date: 20170601
  Transmission Date: 20170830
  Serious: Yes (Hospitalization, Other)
  Sender: FDA-Public Use
  Company Number: US-SA-2017SA064462

PATIENT
  Age: 33 Year
  Sex: Female

DRUGS (15)
  1. LEVETIRACETAM. [Concomitant]
     Active Substance: LEVETIRACETAM
  2. LITHIUM. [Concomitant]
     Active Substance: LITHIUM
  3. MELOXICAM. [Concomitant]
     Active Substance: MELOXICAM
  4. MEMANTINE. [Concomitant]
     Active Substance: MEMANTINE
  5. LEMTRADA [Suspect]
     Active Substance: ALEMTUZUMAB
     Indication: MULTIPLE SCLEROSIS
     Route: 041
     Dates: start: 201603
  6. SOLU-MEDROL [Concomitant]
     Active Substance: METHYLPREDNISOLONE SODIUM SUCCINATE
     Route: 042
  7. GABAPENTIN. [Concomitant]
     Active Substance: GABAPENTIN
  8. AMITRIPTYLINE [Concomitant]
     Active Substance: AMITRIPTYLINE
  9. BACLOFEN. [Concomitant]
     Active Substance: BACLOFEN
  10. ESCITALOPRAM [Concomitant]
     Active Substance: ESCITALOPRAM OXALATE
  11. OMEPRAZOLE. [Concomitant]
     Active Substance: OMEPRAZOLE
  12. ASA [Concomitant]
     Active Substance: ASPIRIN
  13. VALACICLOVIR [Concomitant]
     Active Substance: VALACYCLOVIR HYDROCHLORIDE
  14. AMANTADINE. [Concomitant]
     Active Substance: AMANTADINE HYDROCHLORIDE
  15. TIZANIDINE. [Concomitant]
     Active Substance: TIZANIDINE

REACTIONS (14)
  - Multiple sclerosis relapse [Unknown]
  - Asthenia [Unknown]
  - Hemiparesis [Not Recovered/Not Resolved]
  - Urinary tract infection [Unknown]
  - Confusional state [Not Recovered/Not Resolved]
  - Headache [Not Recovered/Not Resolved]
  - Lethargy [Unknown]
  - Visual impairment [Unknown]
  - Fatigue [Unknown]
  - Pain [Not Recovered/Not Resolved]
  - Paraparesis [Unknown]
  - Nuclear magnetic resonance imaging abnormal [Unknown]
  - Encephalopathy [Not Recovered/Not Resolved]
  - JC virus test positive [Unknown]

NARRATIVE: CASE EVENT DATE: 2017
